FAERS Safety Report 4580181-X (Version None)
Quarter: 2005Q1

REPORT INFORMATION
  Report Type: 
  Country: None (occurrence: None)
  Receive Date: 20050211
  Receipt Date: 20050202
  Transmission Date: 20050727
  Serious: Yes (Other)
  Sender: FDA-Public Use
  Company Number: 2005024234

PATIENT
  Age: 34 Year
  Sex: Male
  Weight: 90.7194 kg

DRUGS (1)
  1. TARTAR CONTROL LISTERINE MOUTHWASH (MENTHOL, METHYL SALICYLATE, EUCALY [Suspect]
     Dosage: 3 TABLESPOONS TWICE DAILY, ORAL TOPICAL, ORAL
     Route: 048
     Dates: start: 20040101

REACTIONS (3)
  - ACCIDENTAL EXPOSURE [None]
  - HYPOAESTHESIA [None]
  - ROAD TRAFFIC ACCIDENT [None]
